FAERS Safety Report 5387538-8 (Version None)
Quarter: 2007Q3

REPORT INFORMATION
  Report Type: 
  Country: None (occurrence: None)
  Receive Date: 20070712
  Receipt Date: 20070628
  Transmission Date: 20080115
  Serious: Yes (Disabling)
  Sender: FDA-Public Use
  Company Number: 6015049

PATIENT
  Age: 66 Year
  Sex: Male

DRUGS (3)
  1. BISOPROLOL FUMARATE [Suspect]
     Indication: DRUG USE FOR UNKNOWN INDICATION
     Dosage: 10 MG ORAL
     Route: 048
     Dates: end: 20050215
  2. PLAVIX [Suspect]
     Indication: DRUG USE FOR UNKNOWN INDICATION
     Dosage: 75 MG (75 MG, 1 IN 1 D)
     Dates: start: 20010615
  3. PROPOLIS (PROPOLIS) [Concomitant]

REACTIONS (11)
  - ALLERGY TEST POSITIVE [None]
  - ALLERGY TO ANIMAL [None]
  - BRONCHIECTASIS [None]
  - CHEST PAIN [None]
  - COOMBS TEST POSITIVE [None]
  - EOSINOPHILIC PNEUMONIA [None]
  - INTERSTITIAL LUNG DISEASE [None]
  - LYMPHADENOPATHY [None]
  - PULMONARY FIBROSIS [None]
  - PULMONARY HYPERTENSION [None]
  - RESPIRATORY FAILURE [None]
